FAERS Safety Report 18682063 (Version 1)
Quarter: 2020Q4

REPORT INFORMATION
  Report Type: Other
  Country: CA (occurrence: CA)
  Receive Date: 20201229
  Receipt Date: 20201229
  Transmission Date: 20210114
  Serious: Yes (Other)
  Sender: FDA-Public Use
  Company Number: CA-CELLTRION INC.-2020CA034492

PATIENT

DRUGS (17)
  1. BENADRYL [Concomitant]
     Active Substance: DIPHENHYDRAMINE HYDROCHLORIDE
     Dosage: 50.0 MILLIGRAM
     Route: 048
  2. EZETIMIBE. [Concomitant]
     Active Substance: EZETIMIBE
  3. METFORMIN HYDROCHLORIDE;SITAGLIPTIN PHOSPHATE MONOHYDRATE [Concomitant]
     Active Substance: METFORMIN HYDROCHLORIDE\SITAGLIPTIN PHOSPHATE
  4. SALBUTAMOL [Concomitant]
     Active Substance: ALBUTEROL
  5. TYLENOL [Concomitant]
     Active Substance: ACETAMINOPHEN
     Dosage: 650.0 MILLIGRAM
     Route: 048
  6. RITUXIMAB (UNKNOWN) [Suspect]
     Active Substance: RITUXIMAB
     Indication: GLOMERULONEPHRITIS
     Dosage: 500.0 MILLIGRAM
     Route: 042
  7. IRBESARTAN. [Concomitant]
     Active Substance: IRBESARTAN
  8. PANTOPRAZOLE [Concomitant]
     Active Substance: PANTOPRAZOLE
     Dosage: 40.0 MILLIGRAM, 1 EVERY 1 DAYS
     Route: 048
  9. MYCOPHENOLATE MOFETIL. [Suspect]
     Active Substance: MYCOPHENOLATE MOFETIL
     Indication: GLOMERULONEPHRITIS
     Dosage: THERAPY DURATION: 325.0 UNIT NOT REPORTED
     Route: 065
  10. METHYLPREDNISOLONE SODIUM SUCCINATE. [Concomitant]
     Active Substance: METHYLPREDNISOLONE SODIUM SUCCINATE
     Dosage: 100.0 MILLIGRAM
     Route: 042
  11. SPIRONOLACTONE. [Concomitant]
     Active Substance: SPIRONOLACTONE
  12. VICTOZA [Concomitant]
     Active Substance: LIRAGLUTIDE
  13. ATORVASTATIN [Concomitant]
     Active Substance: ATORVASTATIN
  14. DAPAGLIFLOZIN PROPANEDIOL MONOHYDRATE [Concomitant]
     Active Substance: DAPAGLIFLOZIN PROPANEDIOL
  15. GLICLAZIDE [Concomitant]
     Active Substance: GLICLAZIDE
  16. CALCIUM [Concomitant]
     Active Substance: CALCIUM
  17. FUROSEMIDE. [Concomitant]
     Active Substance: FUROSEMIDE
     Dosage: 40.0 MILLIGRAM, 2 EVERY 1 DAYS
     Route: 048

REACTIONS (5)
  - Drug ineffective [Unknown]
  - Therapy partial responder [Unknown]
  - Intentional product use issue [Unknown]
  - Proteinuria [Unknown]
  - Off label use [Unknown]
